FAERS Safety Report 24421509 (Version 1)
Quarter: 2024Q4

REPORT INFORMATION
  Report Type: Spontaneous
  Country: IN (occurrence: IN)
  Receive Date: 20241010
  Receipt Date: 20241010
  Transmission Date: 20250115
  Serious: Yes (Other)
  Sender: MSN LABORATORIES
  Company Number: IN-MSNLABS-2024MSNLIT02184

PATIENT

DRUGS (2)
  1. CHLORPROMAZINE HYDROCHLORIDE [Suspect]
     Active Substance: CHLORPROMAZINE HYDROCHLORIDE
     Indication: Schizophrenia
     Dosage: 100 MG, ONCE A DAY
     Route: 065
  2. QUETIAPINE [Suspect]
     Active Substance: QUETIAPINE
     Indication: Schizophrenia
     Dosage: 50 MG, TWICE DAILY
     Route: 065

REACTIONS (4)
  - Nephropathy [Recovered/Resolved]
  - Rhabdomyolysis [Unknown]
  - Acute kidney injury [Recovered/Resolved]
  - Neuroleptic malignant syndrome [Unknown]
